FAERS Safety Report 19213250 (Version 7)
Quarter: 2022Q1

REPORT INFORMATION
  Report Type: Report from Study
  Country: RS (occurrence: RS)
  Receive Date: 20210504
  Receipt Date: 20220222
  Transmission Date: 20220424
  Serious: Yes (Hospitalization)
  Sender: FDA-Public Use
  Company Number: RS-RIGEL PHARMACEUTICALS, INC.-2021FOS000243

PATIENT
  Sex: Female
  Weight: 99 kg

DRUGS (9)
  1. FOSTAMATINIB DISODIUM [Suspect]
     Active Substance: FOSTAMATINIB DISODIUM
     Indication: Warm type haemolytic anaemia
     Dosage: 150 MG, QD
     Route: 048
     Dates: start: 20210212, end: 20210413
  2. FOSTAMATINIB DISODIUM [Suspect]
     Active Substance: FOSTAMATINIB DISODIUM
     Dosage: 100 MG, BID
     Route: 048
     Dates: start: 20201030, end: 20201206
  3. ZINC [Concomitant]
     Active Substance: ZINC
     Indication: COVID-19 pneumonia
     Dosage: 15 MG, QD
     Route: 048
     Dates: start: 20201129
  4. CHOLECALCIFEROL [Concomitant]
     Active Substance: CHOLECALCIFEROL
     Indication: COVID-19 pneumonia
     Dosage: 7 GTT DROPS, QD
     Route: 048
     Dates: start: 20201129
  5. FOLIC ACID [Concomitant]
     Active Substance: FOLIC ACID
     Indication: Warm type haemolytic anaemia
     Dosage: 5 MG, BID
     Route: 048
     Dates: start: 20200331
  6. PREDNISONE [Concomitant]
     Active Substance: PREDNISONE
     Indication: Warm type haemolytic anaemia
     Dosage: 10 MG, QD
     Route: 048
     Dates: start: 20210406
  7. BISOPROLOL [Concomitant]
     Active Substance: BISOPROLOL
     Indication: Product used for unknown indication
     Dosage: 2.5 MG, QD
     Route: 048
     Dates: start: 20210330
  8. ASPIRIN [Concomitant]
     Active Substance: ASPIRIN
     Indication: Hypertension
     Dosage: 100 MG, QD
     Route: 048
     Dates: start: 20210330
  9. CO AMLESSA [Concomitant]
     Indication: Product used for unknown indication
     Dosage: 1 TABLET, QD
     Route: 048
     Dates: start: 20210330

REACTIONS (1)
  - Primary biliary cholangitis [Recovered/Resolved with Sequelae]

NARRATIVE: CASE EVENT DATE: 20210421
